FAERS Safety Report 6581876-9 (Version None)
Quarter: 2010Q1

REPORT INFORMATION
  Report Type: 
  Country: None (occurrence: None)
  Receive Date: 20100212
  Receipt Date: 20100212
  Transmission Date: 20100710
  Serious: Yes (Hospitalization)
  Sender: FDA-Public Use
  Company Number: None

PATIENT
  Age: 72 Year
  Sex: Male
  Weight: 94.2 kg

DRUGS (1)
  1. METOLAZONE [Suspect]
     Dosage: 2.5 MG OTHER PO
     Route: 048
     Dates: start: 20091217, end: 20091229

REACTIONS (6)
  - ABASIA [None]
  - ASTHENIA [None]
  - HICCUPS [None]
  - HYPONATRAEMIA [None]
  - NAUSEA [None]
  - VOMITING [None]
